FAERS Safety Report 17728512 (Version 1)
Quarter: 2020Q2

REPORT INFORMATION
  Report Type: Spontaneous
  Country: DE (occurrence: DE)
  Receive Date: 20200430
  Receipt Date: 20200430
  Transmission Date: 20200714
  Serious: Yes (Death)
  Sender: FDA-Public Use
  Company Number: DE-TEVA-2020-DE-1228297

PATIENT

DRUGS (3)
  1. IFOSFAMIDE. [Suspect]
     Active Substance: IFOSFAMIDE
     Indication: SOFT TISSUE SARCOMA
     Dosage: DAYS 1- 4
     Route: 050
  2. CARBOPLATIN. [Suspect]
     Active Substance: CARBOPLATIN
     Indication: SOFT TISSUE SARCOMA
     Dosage: DAYS 1- 4
     Route: 065
  3. ETOPOSIDE. [Suspect]
     Active Substance: ETOPOSIDE
     Indication: SOFT TISSUE SARCOMA
     Dosage: DAYS 1- 4
     Route: 065

REACTIONS (2)
  - Sepsis [Fatal]
  - Febrile neutropenia [Fatal]
